FAERS Safety Report 6922842-0 (Version None)
Quarter: 2010Q3

REPORT INFORMATION
  Report Type: 
  Country: None (occurrence: None)
  Receive Date: 20100813
  Receipt Date: 20100803
  Transmission Date: 20110219
  Serious: Yes (Other)
  Sender: FDA-Public Use
  Company Number: US-PFIZER INC-2010098183

PATIENT
  Sex: Female
  Weight: 74.83 kg

DRUGS (10)
  1. AROMASIN [Suspect]
     Indication: BREAST CANCER
     Dosage: 25 MG, DAILY
     Route: 048
     Dates: start: 20070101, end: 20070130
  2. AROMASIN [Suspect]
     Dosage: 25 MG, DAILY
     Route: 048
     Dates: start: 20070401
  3. CALCIUM [Concomitant]
     Dosage: 1200 MG, 2X/DAY
  4. MULTI-VITAMINS [Concomitant]
     Dosage: UNK, DAILY
  5. MAGNESIUM [Concomitant]
     Dosage: 250 MG, 2X/DAY
  6. ACETYLSALICYLIC ACID [Concomitant]
     Dosage: UNK, DAILY
  7. VITAMIN D [Concomitant]
     Dosage: 2000 MG, DAILY
  8. FISH OIL [Concomitant]
     Dosage: 1000 MG, 2X/DAY
  9. FLAXSEED OIL [Concomitant]
     Dosage: UNK, 2X/DAY
  10. VITAMIN B COMPLEX CAP [Concomitant]
     Dosage: UNK, DAILY

REACTIONS (5)
  - ARTHRITIS [None]
  - DEPRESSION [None]
  - MYALGIA [None]
  - SUICIDAL IDEATION [None]
  - WEIGHT INCREASED [None]
